FAERS Safety Report 16906191 (Version 1)
Quarter: 2019Q4

REPORT INFORMATION
  Report Type: Spontaneous
  Country: KR (occurrence: KR)
  Receive Date: 20191011
  Receipt Date: 20191011
  Transmission Date: 20200122
  Serious: Yes (Hospitalization)
  Sender: FDA-Public Use
  Company Number: KR-JNJFOC-20191001952

PATIENT
  Age: 27 Year
  Sex: Female

DRUGS (3)
  1. ASACOL [Concomitant]
     Active Substance: MESALAMINE
     Indication: COLITIS ULCERATIVE
  2. REMICADE [Suspect]
     Active Substance: INFLIXIMAB
     Indication: COLITIS ULCERATIVE
     Dosage: TWICE WITH A 2-WEEK INTERVAL
     Route: 042
  3. ASACOL [Concomitant]
     Active Substance: MESALAMINE

REACTIONS (4)
  - Off label use [Unknown]
  - Ileus paralytic [Recovered/Resolved]
  - Disseminated tuberculosis [Recovered/Resolved]
  - Product use issue [Unknown]
